FAERS Safety Report 17243777 (Version 1)
Quarter: 2020Q1

REPORT INFORMATION
  Report Type: Spontaneous
  Country: US (occurrence: US)
  Receive Date: 20200107
  Receipt Date: 20200107
  Transmission Date: 20200409
  Serious: Yes (Other)
  Sender: FDA-Public Use
  Company Number: US-ROCHE-2341125

PATIENT
  Age: 31 Year
  Sex: Male

DRUGS (1)
  1. ACTILYSE [Suspect]
     Active Substance: ALTEPLASE
     Indication: DEEP VEIN THROMBOSIS
     Dosage: 24 MG (1 MG,1 IN 1 HR)
     Route: 065

REACTIONS (2)
  - Axillary vein thrombosis [Unknown]
  - Subclavian vein thrombosis [Unknown]
